FAERS Safety Report 6915121-9 (Version None)
Quarter: 2010Q3

REPORT INFORMATION
  Report Type: 
  Country: None (occurrence: None)
  Receive Date: 20100805
  Receipt Date: 20100805
  Transmission Date: 20110219
  Serious: Yes (Other)
  Sender: FDA-Public Use
  Company Number: None

PATIENT
  Age: 46 Year
  Sex: Female
  Weight: 62.1428 kg

DRUGS (2)
  1. FEMARA [Suspect]
     Indication: BREAST CANCER RECURRENT
     Dosage: 2.5 MG 1 X DAY BUCCAL
     Route: 002
     Dates: start: 20100101, end: 20100602
  2. FEMARA [Suspect]
     Indication: PROPHYLAXIS
     Dosage: 2.5 MG 1 X DAY BUCCAL
     Route: 002
     Dates: start: 20100101, end: 20100602

REACTIONS (5)
  - ACTIVITIES OF DAILY LIVING IMPAIRED [None]
  - GAIT DISTURBANCE [None]
  - MALAISE [None]
  - NAUSEA [None]
  - PAIN IN EXTREMITY [None]
